FAERS Safety Report 5603071-X (Version None)
Quarter: 2008Q1

REPORT INFORMATION
  Report Type: 
  Country: None (occurrence: None)
  Receive Date: 20080125
  Receipt Date: 20070925
  Transmission Date: 20080703
  Serious: Yes (Other)
  Sender: FDA-Public Use
  Company Number: US-PFIZER INC-2007081432

PATIENT
  Sex: Female

DRUGS (4)
  1. CHANTIX [Suspect]
  2. DILANTIN [Interacting]
  3. TRAZODONE HCL [Interacting]
  4. PHENOBARBITAL TAB [Interacting]

REACTIONS (4)
  - ANTICONVULSANT DRUG LEVEL BELOW THERAPEUTIC [None]
  - CONVULSION [None]
  - DRUG INTERACTION [None]
  - DRUG LEVEL DECREASED [None]
